FAERS Safety Report 10170908 (Version 1)
Quarter: 2014Q2

REPORT INFORMATION
  Report Type: Spontaneous
  Country: US (occurrence: None)
  Receive Date: 20140428
  Receipt Date: 20140428
  Transmission Date: 20141212
  Serious: Yes (Other)
  Sender: FDA-Public Use
  Company Number: US-011821

PATIENT
  Age: 31 Year
  Sex: Female

DRUGS (1)
  1. CERVIDIL [Suspect]
     Indication: LABOUR INDUCTION
     Dosage: 10X/DAY, TWO DINOPROSTONE INSERTS ADMINISTERED VAGINAL)
     Dates: start: 20121216, end: 20121217

REACTIONS (3)
  - Drug ineffective [None]
  - Off label use [None]
  - Drug administration error [None]
